FAERS Safety Report 18442278 (Version 1)
Quarter: 2020Q4

REPORT INFORMATION
  Report Type: Spontaneous
  Country: US (occurrence: US)
  Receive Date: 20201029
  Receipt Date: 20201029
  Transmission Date: 20210114
  Serious: No
  Sender: FDA-Public Use
  Company Number: US-BAYER-2020-230644

PATIENT
  Age: 70 Year
  Sex: Male

DRUGS (1)
  1. ALEVE BACK AND MUSCLE PAIN [Suspect]
     Active Substance: NAPROXEN SODIUM
     Indication: PAIN
     Dosage: 1 DF, PRN
     Route: 048
     Dates: start: 20200923, end: 20201023

REACTIONS (2)
  - Wrong technique in product usage process [None]
  - Abdominal pain upper [Unknown]

NARRATIVE: CASE EVENT DATE: 20200923
